FAERS Safety Report 17635996 (Version 2)
Quarter: 2020Q2

REPORT INFORMATION
  Report Type: Spontaneous
  Country: US (occurrence: US)
  Receive Date: 20200407
  Receipt Date: 20200507
  Transmission Date: 20200713
  Serious: Yes (Death, Hospitalization)
  Sender: FDA-Public Use
  Company Number: US-KARYOPHARM-2020KPT000289

PATIENT

DRUGS (1)
  1. XPOVIO [Suspect]
     Active Substance: SELINEXOR
     Indication: PLASMA CELL MYELOMA
     Dosage: 80 MG, 2X/WEEK
     Route: 048
     Dates: start: 20200309, end: 202004

REACTIONS (10)
  - Hyperglycaemia [Unknown]
  - Hyponatraemia [Unknown]
  - Affect lability [Unknown]
  - Anaemia [Unknown]
  - Weight decreased [Unknown]
  - Death [Fatal]
  - Asthenia [Not Recovered/Not Resolved]
  - Cough [Unknown]
  - Nausea [Unknown]
  - Decreased appetite [Unknown]

NARRATIVE: CASE EVENT DATE: 202003
